FAERS Safety Report 7970826-6 (Version None)
Quarter: 2011Q4

REPORT INFORMATION
  Report Type: 
  Country: None (occurrence: None)
  Receive Date: 20111212
  Receipt Date: 20111202
  Transmission Date: 20120403
  Serious: Yes (Hospitalization)
  Sender: FDA-Public Use
  Company Number: US-GLAXOSMITHKLINE-A0880380A

PATIENT
  Age: 86 Year
  Sex: Male

DRUGS (1)
  1. AVANDIA [Suspect]
     Indication: DIABETES MELLITUS
     Route: 048
     Dates: start: 20040918, end: 20070517

REACTIONS (4)
  - MYOCARDIAL INFARCTION [None]
  - CARDIAC DISORDER [None]
  - ARRHYTHMIA [None]
  - CONDITION AGGRAVATED [None]
